FAERS Safety Report 12427962 (Version 4)
Quarter: 2016Q3

REPORT INFORMATION
  Report Type: Spontaneous
  Country: US (occurrence: US)
  Receive Date: 20160602
  Receipt Date: 20160701
  Transmission Date: 20161109
  Serious: Yes (Death, Other)
  Sender: FDA-Public Use
  Company Number: US-ASTELLAS-2016US021244

PATIENT
  Age: 93 Year
  Sex: Male

DRUGS (2)
  1. XTANDI [Suspect]
     Active Substance: ENZALUTAMIDE
     Route: 048
  2. XTANDI [Suspect]
     Active Substance: ENZALUTAMIDE
     Indication: PROSTATE CANCER
     Route: 048
     Dates: start: 20160528

REACTIONS (6)
  - Pain in extremity [Unknown]
  - Cardiac disorder [Fatal]
  - Fatigue [Unknown]
  - Abasia [Unknown]
  - Malignant neoplasm progression [Fatal]
  - Gait disturbance [Unknown]

NARRATIVE: CASE EVENT DATE: 20160528
